FAERS Safety Report 24269945 (Version 4)
Quarter: 2024Q3

REPORT INFORMATION
  Report Type: Spontaneous
  Country: IN (occurrence: IN)
  Receive Date: 20240830
  Receipt Date: 20240912
  Transmission Date: 20241017
  Serious: Yes (Other)
  Sender: PFIZER
  Company Number: IN-TAKEDA-2024TUS085832

PATIENT
  Age: 69 Year
  Sex: Female

DRUGS (6)
  1. PANTOPRAZOLE [Suspect]
     Active Substance: PANTOPRAZOLE
     Dosage: UNK
     Route: 065
  2. CLOPIDOGREL [Concomitant]
     Active Substance: CLOPIDOGREL BISULFATE
     Dosage: UNK
  3. ASPIRIN [Concomitant]
     Active Substance: ASPIRIN
     Dosage: UNK
  4. ATORVASTATIN [Concomitant]
     Active Substance: ATORVASTATIN
     Dosage: UNK
  5. TELMISARTAN [Concomitant]
     Active Substance: TELMISARTAN
     Dosage: UNK
  6. METOPROLOL [Concomitant]
     Active Substance: METOPROLOL
     Dosage: UNK

REACTIONS (5)
  - Generalised tonic-clonic seizure [Unknown]
  - Hypokalaemia [Recovered/Resolved]
  - Hyperparathyroidism secondary [Unknown]
  - Hypomagnesaemia [Recovered/Resolved]
  - Hypocalcaemia [Recovered/Resolved]
